FAERS Safety Report 15351120 (Version 8)
Quarter: 2020Q4

REPORT INFORMATION
  Report Type: Report from Study
  Country: DE (occurrence: DE)
  Receive Date: 20180905
  Receipt Date: 20201106
  Transmission Date: 20210113
  Serious: Yes (Hospitalization)
  Sender: FDA-Public Use
  Company Number: DE-ROCHE-2180025

PATIENT
  Age: 83 Year
  Sex: Female
  Weight: 83 kg

DRUGS (15)
  1. COBIMETINIB. [Suspect]
     Active Substance: COBIMETINIB
     Dosage: LAST DOSE PRIOR TO SAE MALAISE: 22/SEP/2018
     Route: 048
     Dates: start: 20180811
  2. NORVASC [Concomitant]
     Active Substance: AMLODIPINE BESYLATE
  3. ESOMEPRAZOL [Concomitant]
     Active Substance: ESOMEPRAZOLE
  4. MARCUMAR [Concomitant]
     Active Substance: PHENPROCOUMON
  5. BISOPROLOL [Concomitant]
     Active Substance: BISOPROLOL
  6. BECLOMETASONE [Concomitant]
     Active Substance: BECLOMETHASONE DIPROPIONATE
  7. VEMURAFENIB. [Suspect]
     Active Substance: VEMURAFENIB
     Indication: MALIGNANT MELANOMA
     Dosage: LAST DOSE PRIOR TO SAE DYSPNEA: 02/SEP/2018
     Route: 048
     Dates: start: 20180810, end: 20180902
  8. VEMURAFENIB. [Suspect]
     Active Substance: VEMURAFENIB
     Dosage: LAST DOSE PRIOR TO SAE MALAISE: 22/SEP/2018
     Route: 048
     Dates: start: 20180811
  9. KALINOR [Concomitant]
  10. ATACAND PLUS [Concomitant]
     Active Substance: CANDESARTAN CILEXETIL\HYDROCHLOROTHIAZIDE
  11. TORASEMID [Concomitant]
     Active Substance: TORSEMIDE
  12. VIGANTOLETTEN [Concomitant]
     Active Substance: CHOLECALCIFEROL
  13. NOVAMINSULFON [Concomitant]
     Active Substance: METAMIZOLE
  14. L THYROXIN [Concomitant]
     Active Substance: LEVOTHYROXINE SODIUM
  15. COBIMETINIB. [Suspect]
     Active Substance: COBIMETINIB
     Indication: MALIGNANT MELANOMA
     Dosage: LAST DOSE PRIOR TO SAE DYSPNEA: 01/SEP/2018
     Route: 048
     Dates: start: 20180810

REACTIONS (4)
  - Malaise [Unknown]
  - Dyspnoea [Recovered/Resolved]
  - Fall [Unknown]
  - Syncope [Recovered/Resolved]

NARRATIVE: CASE EVENT DATE: 20180903
